FAERS Safety Report 24613631 (Version 1)
Quarter: 2024Q4

REPORT INFORMATION
  Report Type: Spontaneous
  Country: PL (occurrence: PL)
  Receive Date: 20241113
  Receipt Date: 20241113
  Transmission Date: 20250115
  Serious: Yes (Hospitalization, Other)
  Sender: SANDOZ
  Company Number: PL-002147023-NVSC2022PL189388

PATIENT
  Age: 54 Year
  Sex: Female

DRUGS (12)
  1. ACEMETACIN [Suspect]
     Active Substance: ACEMETACIN
     Indication: Rheumatoid arthritis
     Dosage: 90 MG, DAILY
     Route: 065
  2. ACEMETACIN [Suspect]
     Active Substance: ACEMETACIN
     Dosage: UP TO 6 TABLETS A DAY
     Route: 065
  3. ALPRAZOLAM [Suspect]
     Active Substance: ALPRAZOLAM
     Indication: Insomnia
     Dosage: 0.25 MG, QD
     Route: 048
  4. ALPRAZOLAM [Suspect]
     Active Substance: ALPRAZOLAM
     Dosage: 1 MG, BID
     Route: 048
  5. ALPRAZOLAM [Suspect]
     Active Substance: ALPRAZOLAM
     Dosage: 1 MG, TID
     Route: 048
  6. ESTAZOLAM [Suspect]
     Active Substance: ESTAZOLAM
     Indication: Insomnia
     Dosage: 2 MG, QD (30 MINUTES BEFORE SLEEP)
     Route: 048
  7. ESTAZOLAM [Suspect]
     Active Substance: ESTAZOLAM
     Dosage: 2 MG, UNKNOWN, (6-8 TABLETS DAILY, ONE TABLET EVERY HOUR DURING NIGHT)
     Route: 048
  8. METHOTREXATE [Suspect]
     Active Substance: METHOTREXATE
     Indication: Rheumatoid arthritis
     Dosage: 10 MG
     Route: 065
  9. METHYLPREDNISOLONE [Suspect]
     Active Substance: METHYLPREDNISOLONE
     Indication: Rheumatoid arthritis
     Dosage: 4 MG, QD
     Route: 065
  10. ZOLPIDEM [Suspect]
     Active Substance: ZOLPIDEM TARTRATE
     Indication: Insomnia
     Dosage: 10 MG, QD (BEFORE SLEEP)
     Route: 048
  11. ZOLPIDEM [Suspect]
     Active Substance: ZOLPIDEM TARTRATE
     Dosage: UNK, (HIGHER DOSES, 6-8 TABLETS DAILY)
     Route: 048
  12. ZOLPIDEM [Suspect]
     Active Substance: ZOLPIDEM TARTRATE
     Dosage: UNK, (ONE TABLET EVERY HOUR DURING NIGHT)
     Route: 048

REACTIONS (9)
  - Drug dependence [Unknown]
  - Loss of personal independence in daily activities [Unknown]
  - Arthropathy [Recovering/Resolving]
  - Impaired quality of life [Unknown]
  - Intentional product misuse [Unknown]
  - Drug abuse [Unknown]
  - Intentional product use issue [Unknown]
  - Circumstance or information capable of leading to medication error [Unknown]
  - Drug effect less than expected [Unknown]

NARRATIVE: CASE EVENT DATE: 20160101
